FAERS Safety Report 8511565-2 (Version None)
Quarter: 2012Q3

REPORT INFORMATION
  Report Type: 
  Country: None (occurrence: None)
  Receive Date: 20120716
  Receipt Date: 20120709
  Transmission Date: 20120928
  Serious: Yes (Hospitalization)
  Sender: FDA-Public Use
  Company Number: PHHY2012IT059818

PATIENT
  Sex: Female

DRUGS (8)
  1. OXCARBAZEPINE [Suspect]
     Dosage: 2 TABLETS AT 8:00 AM AND 1 TABLET AT 13.00 PM AND 1 TABLET AT 8.00 PM
     Route: 048
  2. SEROQUEL [Suspect]
     Dosage: 12000 MG, ONCE/SINGLE
     Route: 048
     Dates: start: 20120305
  3. ZOLPIDEM TARTRATE [Concomitant]
     Dosage: 10 MG, UNK
  4. SEROQUEL [Suspect]
     Dosage: 2 TABLETS AT 8.00 PM
     Route: 048
  5. LORAZEPAM [Concomitant]
     Dosage: 3.75 MG, UNK
  6. OXCARBAZEPINE [Suspect]
     Dosage: 4500 MG, ONCE/SINGLE
     Route: 048
     Dates: start: 20120305
  7. SEREPRILE [Concomitant]
     Dosage: 50 MG, UNK
  8. ESCITALOPRAM [Concomitant]
     Dosage: 10 MG, UNK

REACTIONS (8)
  - FEELING HOT [None]
  - MYDRIASIS [None]
  - AGITATION [None]
  - HEADACHE [None]
  - COMA [None]
  - RESPIRATORY FAILURE [None]
  - TACHYCARDIA [None]
  - COORDINATION ABNORMAL [None]
